FAERS Safety Report 19224956 (Version 2)
Quarter: 2021Q2

REPORT INFORMATION
  Report Type: Report from Study
  Country: US (occurrence: US)
  Receive Date: 20210506
  Receipt Date: 20210601
  Transmission Date: 20210717
  Serious: Yes (Other)
  Sender: FDA-Public Use
  Company Number: US-BAYER-2021-134058

PATIENT
  Age: 75 Year
  Sex: Female
  Weight: 49.43 kg

DRUGS (6)
  1. ELIQUIS [Concomitant]
     Active Substance: APIXABAN
     Dosage: UNK
  2. ADEMPAS [Suspect]
     Active Substance: RIOCIGUAT
     Indication: PULMONARY ARTERIAL HYPERTENSION
     Dosage: 1.5 MG, TID
     Route: 048
  3. ADEMPAS [Suspect]
     Active Substance: RIOCIGUAT
     Indication: PULMONARY ARTERIAL HYPERTENSION
     Dosage: UNK
     Route: 048
     Dates: start: 20200706
  4. ADEMPAS [Suspect]
     Active Substance: RIOCIGUAT
     Indication: PULMONARY ARTERIAL HYPERTENSION
     Dosage: 1 MG
     Dates: start: 2021
  5. TREPROSTINIL SODIUM [Suspect]
     Active Substance: TREPROSTINIL SODIUM
     Indication: PULMONARY ARTERIAL HYPERTENSION
     Dosage: UNK
     Route: 055
     Dates: start: 20171017
  6. OPSUMIT [Concomitant]
     Active Substance: MACITENTAN

REACTIONS (13)
  - Rhinorrhoea [None]
  - Vitamin B complex deficiency [Unknown]
  - Nasopharyngitis [Unknown]
  - Pyrexia [None]
  - Vitamin D deficiency [Unknown]
  - Vomiting [None]
  - Sneezing [None]
  - Hypotension [Unknown]
  - Productive cough [Unknown]
  - Liver disorder [None]
  - Increased upper airway secretion [None]
  - Upper respiratory tract infection [Unknown]
  - Nasal congestion [Unknown]
